FAERS Safety Report 25374351 (Version 4)
Quarter: 2025Q3

REPORT INFORMATION
  Report Type: Spontaneous
  Country: US (occurrence: US)
  Receive Date: 20250529
  Receipt Date: 20250801
  Transmission Date: 20251020
  Serious: No
  Sender: GILEAD
  Company Number: US-GILEAD-2025-0714398

PATIENT
  Sex: Male

DRUGS (2)
  1. LENACAPAVIR [Suspect]
     Active Substance: LENACAPAVIR
     Indication: Product used for unknown indication
     Route: 065
  2. LENACAPAVIR [Suspect]
     Active Substance: LENACAPAVIR
     Indication: Product used for unknown indication
     Dosage: 1 DOSAGE FORM, Q1WK
     Route: 048

REACTIONS (3)
  - Injection site pain [Unknown]
  - Fatigue [Unknown]
  - Inappropriate schedule of product administration [Not Recovered/Not Resolved]
